FAERS Safety Report 25669073 (Version 1)
Quarter: 2025Q3

REPORT INFORMATION
  Report Type: Spontaneous
  Country: US (occurrence: US)
  Receive Date: 20250812
  Receipt Date: 20250812
  Transmission Date: 20251021
  Serious: Yes (Hospitalization)
  Sender: RANBAXY
  Company Number: US-SUN PHARMACEUTICAL INDUSTRIES LTD-2025R1-521545

PATIENT
  Age: 34 Year
  Sex: Male

DRUGS (2)
  1. OMEPRAZOLE [Suspect]
     Active Substance: OMEPRAZOLE
     Indication: Abdominal discomfort
     Route: 065
  2. BISMUTH SUBSALICYLATE [Suspect]
     Active Substance: BISMUTH SUBSALICYLATE
     Indication: Abdominal discomfort
     Route: 065

REACTIONS (8)
  - Drug ineffective [Unknown]
  - Weight decreased [Unknown]
  - Hypophagia [Unknown]
  - Pyrexia [Unknown]
  - Chills [Unknown]
  - Night sweats [Unknown]
  - Chest pain [Unknown]
  - Cough [Unknown]
